FAERS Safety Report 5173424-5 (Version None)
Quarter: 2006Q4

REPORT INFORMATION
  Report Type: 
  Country: None (occurrence: None)
  Receive Date: 20061206
  Receipt Date: 20061106
  Transmission Date: 20070319
  Serious: Yes (Hospitalization, Other)
  Sender: FDA-Public Use
  Company Number: 2006141043

PATIENT
  Sex: 0

DRUGS (2)
  1. CELEBREX [Suspect]
     Dates: start: 20000501
  2. BEXTRA [Suspect]
     Dates: start: 20000501

REACTIONS (2)
  - CEREBROVASCULAR ACCIDENT [None]
  - INJURY [None]
